FAERS Safety Report 8028085 (Version 2)
Quarter: 2013Q2

REPORT INFORMATION
  Report Type: Spontaneous
  Country: US (occurrence: US)
  Receive Date: 20110527
  Receipt Date: 20130423
  Transmission Date: 20140414
  Serious: Yes (Other)
  Sender: FDA-Public Use
  Company Number: US200902002442

PATIENT
  Age: 76 Year
  Sex: Female
  Weight: 64.85 kg

DRUGS (16)
  1. BYETTA PEN DISPOSABLE [Suspect]
     Indication: TYPE 2 DIABETES MELLITUS
     Route: 058
     Dates: start: 20080612, end: 200807
  2. BYETTA PEN DISPOSABLE [Suspect]
     Indication: TYPE 2 DIABETES MELLITUS
     Dates: start: 200807, end: 20090127
  3. EXENATIDE 10MCG PEN, DISPOSABLE DEVICE [Concomitant]
  4. PLAVIX [Concomitant]
     Indication: CORONARY ARTERY DISEASE
     Route: 048
  5. VYTORIN [Concomitant]
     Indication: HYPERLIPIDAEMIA
  6. AZOR [Concomitant]
     Dates: start: 200802
  7. GLIPIZIDE [Concomitant]
     Indication: TYPE 2 DIABETES MELLITUS
     Route: 048
  8. ACETYLSALICYLIC ACID [Concomitant]
     Indication: CORONARY ARTERY DISEASE
     Route: 048
  9. FISH OIL [Concomitant]
  10. FUROSEMIDE [Concomitant]
  11. COLCHICINE [Concomitant]
     Indication: BLOOD CHOLESTEROL
  12. CEFUROXIME [Concomitant]
  13. BYETTA [Concomitant]
  14. CALCIUM [Concomitant]
  15. BENICAR [Concomitant]
  16. ACTOS [Concomitant]

REACTIONS (3)
  - Pancreatitis [Recovered/Resolved]
  - Weight decreased [Recovering/Resolving]
  - Renal injury [Unknown]
